FAERS Safety Report 24550690 (Version 1)
Quarter: 2024Q4

REPORT INFORMATION
  Report Type: Spontaneous
  Country: DE (occurrence: DE)
  Receive Date: 20241025
  Receipt Date: 20241025
  Transmission Date: 20250114
  Serious: No
  Sender: JAZZ
  Company Number: DE-JAZZ PHARMACEUTICALS-2024-DE-016502

PATIENT
  Age: 27 Year
  Sex: Female

DRUGS (1)
  1. DEFIBROTIDE [Suspect]
     Active Substance: DEFIBROTIDE (BOVINE)
     Indication: Venoocclusive disease
     Dosage: UNK
     Dates: start: 202407

REACTIONS (1)
  - Therapeutic product effect delayed [Unknown]
